FAERS Safety Report 11671198 (Version 1)
Quarter: 2015Q4

REPORT INFORMATION
  Report Type: Spontaneous
  Country: US (occurrence: US)
  Receive Date: 20151028
  Receipt Date: 20151028
  Transmission Date: 20160304
  Serious: No
  Sender: FDA-Public Use
  Company Number: US-ASTRAZENECA-2015SF01442

PATIENT
  Sex: Male
  Weight: 81.6 kg

DRUGS (1)
  1. MOVANTIK [Suspect]
     Active Substance: NALOXEGOL OXALATE
     Indication: CONSTIPATION
     Route: 048
     Dates: start: 20151009

REACTIONS (5)
  - Back pain [Unknown]
  - Pain [Unknown]
  - Neck pain [Unknown]
  - Myalgia [Unknown]
  - Constipation [Unknown]
